FAERS Safety Report 5755391-6 (Version None)
Quarter: 2008Q2

REPORT INFORMATION
  Report Type: 
  Country: None (occurrence: None)
  Receive Date: 20080602
  Receipt Date: 20080528
  Transmission Date: 20081010
  Serious: Yes (Death)
  Sender: FDA-Public Use
  Company Number: US-ROCHE-567115

PATIENT
  Sex: Female
  Weight: 98.4 kg

DRUGS (2)
  1. CAPECITABINE [Suspect]
     Indication: BREAST CANCER
     Dosage: 1000 MG IN THE AM AND PM
     Route: 048
     Dates: start: 20070411
  2. TYKERB [Concomitant]

REACTIONS (1)
  - DEATH [None]
